FAERS Safety Report 25968751 (Version 2)
Quarter: 2025Q4

REPORT INFORMATION
  Report Type: Spontaneous
  Country: JP (occurrence: JP)
  Receive Date: 20251028
  Receipt Date: 20251117
  Transmission Date: 20260118
  Serious: Yes (Other)
  Sender: PFIZER
  Company Number: JP-PFIZER INC-PV202500123701

PATIENT
  Age: 76 Year

DRUGS (2)
  1. ELREXFIO [Suspect]
     Active Substance: ELRANATAMAB-BCMM
     Indication: Plasma cell myeloma refractory
     Dosage: 12 MG (FIRST STEP-UP)
     Route: 050
     Dates: start: 2024
  2. ELREXFIO [Suspect]
     Active Substance: ELRANATAMAB-BCMM
     Dosage: 32 MG (SECOND STEP-UP)

REACTIONS (11)
  - Cytokine release syndrome [Unknown]
  - Neuropathy peripheral [Unknown]
  - Hypogammaglobulinaemia [Unknown]
  - Second primary malignancy [Unknown]
  - Colon cancer [Unknown]
  - Metastases to liver [Unknown]
  - Taste disorder [Unknown]
  - Skin disorder [Unknown]
  - Tooth infection [Unknown]
  - Cellulitis [Unknown]
  - Decreased appetite [Unknown]

NARRATIVE: CASE EVENT DATE: 20240101
